FAERS Safety Report 4963880-7 (Version None)
Quarter: 2006Q1

REPORT INFORMATION
  Report Type: 
  Country: None (occurrence: None)
  Receive Date: 20060330
  Receipt Date: 20060321
  Transmission Date: 20060701
  Serious: Yes (Hospitalization, Other)
  Sender: FDA-Public Use
  Company Number: 2005-07-1340

PATIENT
  Age: 44 Year
  Sex: Female
  Weight: 56.6996 kg

DRUGS (5)
  1. NASONEX [Suspect]
     Indication: HYPERSENSITIVITY
     Dosage: SEE IMAGE
     Dates: start: 20001101, end: 20040501
  2. NASONEX [Suspect]
     Indication: HYPERSENSITIVITY
     Dosage: SEE IMAGE
     Dates: start: 20001101, end: 20050301
  3. NASONEX [Suspect]
     Indication: HYPERSENSITIVITY
     Dosage: SEE IMAGE
     Dates: start: 20040601, end: 20050301
  4. MULTI-VITAMIN [Concomitant]
  5. IRON [Concomitant]

REACTIONS (3)
  - GAIT DISTURBANCE [None]
  - GROIN PAIN [None]
  - OSTEONECROSIS [None]
